FAERS Safety Report 15140683 (Version 1)
Quarter: 2018Q3

REPORT INFORMATION
  Report Type: Spontaneous
  Country: US (occurrence: US)
  Receive Date: 20180618
  Receipt Date: 20180618
  Transmission Date: 20181010
  Serious: Yes (Other)
  Sender: FDA-Public Use
  Company Number: None

PATIENT
  Age: 40 Year
  Sex: Male
  Weight: 79.5 kg

DRUGS (1)
  1. OLARATUMAB [Suspect]
     Active Substance: OLARATUMAB
     Indication: RHABDOMYOSARCOMA
     Route: 017

REACTIONS (4)
  - Heart rate increased [None]
  - Dyspnoea [None]
  - Flushing [None]
  - Malaise [None]

NARRATIVE: CASE EVENT DATE: 20180612
